FAERS Safety Report 23558755 (Version 6)
Quarter: 2024Q2

REPORT INFORMATION
  Report Type: Report from Study
  Country: US (occurrence: US)
  Receive Date: 20240223
  Receipt Date: 20240531
  Transmission Date: 20240715
  Serious: Yes (Hospitalization, Other)
  Sender: FDA-Public Use
  Company Number: US-ARGENX-2023-ARGX-US004548

PATIENT

DRUGS (7)
  1. VYVGART [Suspect]
     Active Substance: EFGARTIGIMOD ALFA-FCAB
     Indication: Myasthenia gravis
     Dosage: 1100 MG, 1/WEEK  FOR 4 WEEKS THEN 4 WEEKS OFF (STRENGTH: 400MG/20ML)
     Route: 042
     Dates: start: 20230620, end: 202312
  2. VYVGART [Suspect]
     Active Substance: EFGARTIGIMOD ALFA-FCAB
     Dosage: 1100 MG, 1/WEEK CONTINUOUSLY (STRENGTH: 400MG/20ML)
     Route: 042
     Dates: start: 202312
  3. EPIPEN [Concomitant]
     Active Substance: EPINEPHRINE
     Indication: Product used for unknown indication
     Dosage: UNK
     Route: 065
  4. SODIUM CHLORIDE [Concomitant]
     Active Substance: SODIUM CHLORIDE
     Indication: Product used for unknown indication
     Dosage: 100 ML/BAG
     Route: 065
  5. SODIUM CHLORIDE [Concomitant]
     Active Substance: SODIUM CHLORIDE
     Dosage: 10 ML POSIFLUSH
     Route: 065
  6. CELLCEPT [Concomitant]
     Active Substance: MYCOPHENOLATE MOFETIL
     Indication: Product used for unknown indication
     Dosage: 500 MG, BID
     Route: 048
  7. PREDNISONE [Concomitant]
     Active Substance: PREDNISONE
     Indication: Product used for unknown indication
     Dosage: 2.5 PER GRAM
     Route: 048

REACTIONS (21)
  - Myasthenia gravis [Recovered/Resolved]
  - Myasthenia gravis crisis [Recovered/Resolved]
  - Immunodeficiency [Unknown]
  - Choking [Not Recovered/Not Resolved]
  - Dyspnoea at rest [Unknown]
  - Myasthenia gravis [Not Recovered/Not Resolved]
  - Nasal congestion [Recovered/Resolved]
  - Fatigue [Not Recovered/Not Resolved]
  - Fatigue [Recovered/Resolved]
  - Upper respiratory tract infection [Recovered/Resolved]
  - Infection [Recovered/Resolved]
  - Cough [Unknown]
  - Cough [Recovered/Resolved]
  - Pain in jaw [Unknown]
  - Dyspnoea exertional [Not Recovered/Not Resolved]
  - Asthenia [Not Recovered/Not Resolved]
  - Diplopia [Not Recovered/Not Resolved]
  - Eyelid ptosis [Not Recovered/Not Resolved]
  - Headache [Unknown]
  - Therapeutic response shortened [Unknown]
  - Dysphagia [Unknown]

NARRATIVE: CASE EVENT DATE: 20240205
